FAERS Safety Report 9613602 (Version 2)
Quarter: 2013Q4

REPORT INFORMATION
  Report Type: Spontaneous
  Country: GB (occurrence: GB)
  Receive Date: 20131010
  Receipt Date: 20131010
  Transmission Date: 20140711
  Serious: Yes (Other)
  Sender: FDA-Public Use
  Company Number: GB-VERTEX PHARMACEUTICALS INC-2013-009551

PATIENT
  Age: 62 Year
  Sex: Male
  Weight: 84 kg

DRUGS (10)
  1. INCIVO [Suspect]
     Indication: CHRONIC HEPATITIS C
     Dosage: 1125 MG, 3 TIMES EVERY 2 DAYS
     Route: 065
  2. INCIVO [Suspect]
     Route: 048
     Dates: start: 20130813, end: 20130821
  3. RIBAVIRIN [Suspect]
     Indication: CHRONIC HEPATITIS C
     Dosage: 600 MG, BID
     Route: 048
     Dates: start: 20130813
  4. RIBAVIRIN [Suspect]
     Dosage: DOSAGE FORM: UNSPECIFIED
     Route: 048
  5. PEG INTERFERON [Suspect]
     Indication: CHRONIC HEPATITIS C
     Dosage: 120 ?G, QW
     Route: 058
     Dates: start: 20130813
  6. FLUOXETINE [Concomitant]
     Indication: DEPRESSION
     Dosage: UNK, QD
     Route: 048
  7. DIHYDROCODEINE [Concomitant]
     Indication: PAIN IN EXTREMITY
     Dosage: DOSAGE FORM: UNKNOWN
     Route: 048
  8. AMLODIPINE [Concomitant]
     Dosage: DOSAGE FORM: UNKNOWN
     Route: 065
  9. OMEPRAZOLE [Concomitant]
     Indication: GASTRIC DISORDER
  10. PROPANOLOL HCL [Concomitant]

REACTIONS (5)
  - Renal failure acute [Recovered/Resolved]
  - Malaise [Recovered/Resolved]
  - Anaemia [Unknown]
  - Hyperbilirubinaemia [Unknown]
  - Thrombocytopenia [Unknown]
